FAERS Safety Report 8189163-2 (Version None)
Quarter: 2012Q1

REPORT INFORMATION
  Report Type: 
  Country: None (occurrence: None)
  Receive Date: 20120306
  Receipt Date: 20120306
  Transmission Date: 20120608
  Serious: Yes (Other)
  Sender: FDA-Public Use
  Company Number: None

PATIENT
  Sex: Female
  Weight: 68.0396 kg

DRUGS (1)
  1. PRADAXA [Suspect]
     Indication: ATRIAL FIBRILLATION
     Dosage: 150MGM BID PO
     Route: 048
     Dates: start: 20111101, end: 20120201

REACTIONS (4)
  - CHEST PAIN [None]
  - RASH PRURITIC [None]
  - NAUSEA [None]
  - DIARRHOEA [None]
